FAERS Safety Report 12442628 (Version 1)
Quarter: 2016Q2

REPORT INFORMATION
  Report Type: Spontaneous
  Country: US (occurrence: None)
  Receive Date: 20160606
  Receipt Date: 20160606
  Transmission Date: 20160815
  Serious: Yes (Disabling)
  Sender: FDA-Public Use
  Company Number: None

PATIENT
  Age: 49 Year
  Sex: Female
  Weight: 149.69 kg

DRUGS (1)
  1. GABAPENTIN, 300 MG [Suspect]
     Active Substance: GABAPENTIN
     Indication: NEURALGIA
     Dosage: 90 TABLETS ONCE A DAY
     Route: 048

REACTIONS (2)
  - Fear [None]
  - Thinking abnormal [None]

NARRATIVE: CASE EVENT DATE: 20160101
